FAERS Safety Report 8230562-8 (Version None)
Quarter: 2012Q1

REPORT INFORMATION
  Report Type: 
  Country: None (occurrence: None)
  Receive Date: 20120323
  Receipt Date: 20120316
  Transmission Date: 20120608
  Serious: Yes (Other)
  Sender: FDA-Public Use
  Company Number: US-JNJFOC-20120207572

PATIENT
  Sex: Male

DRUGS (9)
  1. STELARA [Suspect]
     Route: 058
  2. STELARA [Suspect]
     Indication: PSORIASIS
     Route: 058
     Dates: end: 20120131
  3. STELARA [Suspect]
     Route: 058
  4. STELARA [Suspect]
     Route: 058
  5. STELARA [Suspect]
     Route: 058
  6. STELARA [Suspect]
     Dosage: APPROXIMATELY 8 INJECTIONS
     Route: 058
     Dates: start: 20090319
  7. STELARA [Suspect]
     Route: 058
  8. STELARA [Suspect]
     Route: 058
  9. MULTI-VITAMINS [Concomitant]
     Route: 065

REACTIONS (1)
  - PROSTATE CANCER [None]
